FAERS Safety Report 17386670 (Version 1)
Quarter: 2020Q1

REPORT INFORMATION
  Report Type: Spontaneous
  Country: CZ (occurrence: CZ)
  Receive Date: 20200206
  Receipt Date: 20200206
  Transmission Date: 20200409
  Serious: Yes (Death, Life-Threatening, Hospitalization)
  Sender: FDA-Public Use
  Company Number: CZ-MYLANLABS-2020M1013275

PATIENT
  Age: 69 Year
  Sex: Male

DRUGS (3)
  1. BUPRENORPHINE. [Suspect]
     Active Substance: BUPRENORPHINE
     Indication: ANALGESIC THERAPY
     Dosage: UNK
     Route: 065
  2. CLINDAMYCIN. [Suspect]
     Active Substance: CLINDAMYCIN
     Indication: ANTIBIOTIC THERAPY
     Dosage: UNK
     Route: 048
  3. CIPROFLOXACIN. [Suspect]
     Active Substance: CIPROFLOXACIN
     Indication: ANTIBIOTIC THERAPY
     Dosage: UNK
     Route: 048

REACTIONS (12)
  - Abnormal behaviour [Unknown]
  - Septic shock [Unknown]
  - Mobility decreased [Fatal]
  - Retroperitoneal abscess [Unknown]
  - Mass [Unknown]
  - Disease progression [Fatal]
  - Sarcopenia [Unknown]
  - Drug ineffective [Unknown]
  - C-reactive protein increased [Unknown]
  - Pain [Fatal]
  - General physical health deterioration [Unknown]
  - Staphylococcal infection [Unknown]
